FAERS Safety Report 9332620 (Version 2)
Quarter: 2013Q4

REPORT INFORMATION
  Report Type: Spontaneous
  Country: CA (occurrence: None)
  Receive Date: 20130603
  Receipt Date: 20131018
  Transmission Date: 20140711
  Serious: Yes (Hospitalization)
  Sender: FDA-Public Use
  Company Number: 2013-0748

PATIENT
  Age: 76 Year
  Sex: Male

DRUGS (17)
  1. CARFILZOMIB (CARFILZOMIB) (20 MILLIGRAM(S)/SQ.METER, INJECTION FOR INFUSION) (CARFILZOMIB) [Suspect]
     Indication: PLASMA CELL MYELOMA
     Dosage: 11.6 MG (40.5 MG,DAYS 1,2)
     Route: 042
     Dates: start: 20130131, end: 20130201
  2. DEXAMETHASONE (DEXAMETHASONE) (DEXAMETHASONE) [Suspect]
     Indication: PLASMA CELL MYELOMA
     Dosage: 5.7143 MG (20 MG,DAYS 1,2,8,9,15,16,22,23,EVERY 28 DAYS)
     Route: 048
     Dates: start: 20130131, end: 20130426
  3. GENERIC VERSION OF VASOTEC (ENALAPRIL) (ENALAPRIL) [Concomitant]
  4. HYDROCHLOROTHIAZIDE (HYDROCHLOROTHIAZIDE) (HYDROCHLOROTHIAZIDE) [Concomitant]
  5. NORVASC (AMLODIPINE BESILATE) (AMLODIPINE BESILATE) [Concomitant]
  6. DOXASOZINE (DOXAZOSIN MESILATE) (DOXAZOSIN MESILATE) [Concomitant]
  7. LEVOTHYROXINE (LEVOTHYROXINE) (LEVOTHYROXINE) [Concomitant]
  8. ACYCLOVIR (ACICLOVIR) (ACICLOVIR) [Concomitant]
  9. PANTALOC (PANTOPRAZOLE SODIUM SESQUIHYDRATE) (PANTOPRAZOLE SODIUM SESQUIHYDRATE) [Concomitant]
  10. STEMETIL (PROCHLORPERAZINE) (PROCHLORPERAZINE) [Concomitant]
  11. VITAMIN D (ERGOCALCIFEROL) ERGOCALCIFEROL) [Concomitant]
  12. VITAMN B12 (CYANOCOBALAMIN) (CYANOCOBALAMIN) [Concomitant]
  13. METAMUCIL (PLANTAGO OVATA) (CAPSULE) (PLANTAGO OVATA) [Concomitant]
  14. DOCUSATE (DOCUSATE) (DOCUSATE) [Concomitant]
  15. PAMIDRONATE (PAMIDRONATE DISODIUM) (PAMIDRONATE DISODIUM) [Concomitant]
  16. CIPRALEX (ESCITALOPRAM) (ESCITALOPRAM) [Concomitant]
  17. TYLENOL (PARACETAMOL) (PARACETAMOL) [Concomitant]

REACTIONS (11)
  - Spinal compression fracture [None]
  - Rib fracture [None]
  - Respiratory failure [None]
  - Pulmonary oedema [None]
  - Atypical pneumonia [None]
  - Pleural effusion [None]
  - Diastolic dysfunction [None]
  - Aortic arteriosclerosis [None]
  - Mitral valve calcification [None]
  - Pulmonary arterial hypertension [None]
  - Left atrial dilatation [None]
